FAERS Safety Report 4280594-X (Version None)
Quarter: 2004Q1

REPORT INFORMATION
  Report Type: 
  Country: None (occurrence: None)
  Receive Date: 20040127
  Receipt Date: 20031205
  Transmission Date: 20041129
  Serious: No
  Sender: FDA-Public Use
  Company Number: 6843

PATIENT
  Age: 14 Year
  Sex: Female

DRUGS (4)
  1. RHEUMATREX [Suspect]
     Dosage: 10 MG WEEKLY PO
     Route: 048
  2. SULFASALAZINE [Concomitant]
  3. FOLIC ACID [Concomitant]
  4. TRIAMCINOLONE [Concomitant]

REACTIONS (5)
  - DRUG INEFFECTIVE [None]
  - JOINT SWELLING [None]
  - MUSCULOSKELETAL STIFFNESS [None]
  - OESOPHAGITIS ULCERATIVE [None]
  - SYNOVITIS [None]
